FAERS Safety Report 9818640 (Version 1)
Quarter: 2013Q4

REPORT INFORMATION
  Report Type: Spontaneous
  Country: US (occurrence: None)
  Receive Date: 20131223
  Receipt Date: 20131223
  Transmission Date: 20140711
  Serious: No
  Sender: FDA-Public Use
  Company Number: 220034

PATIENT
  Age: 55 Year
  Sex: Male

DRUGS (3)
  1. PICATO [Suspect]
     Indication: ACTINIC KERATOSIS
     Dosage: FOR 3 DAYS , TOPICAL
     Route: 061
     Dates: start: 20130101
  2. BYSTOLIC (NEBIVOLOL HYDROCHLORIDE) (10 MG) [Concomitant]
  3. HCTZ (HYDROCHLOROTHIAZIDE) (25 MG) [Concomitant]

REACTIONS (4)
  - Application site pain [None]
  - Application site exfoliation [None]
  - Application site pruritus [None]
  - Application site erythema [None]
